FAERS Safety Report 13098849 (Version 1)
Quarter: 2017Q1

REPORT INFORMATION
  Report Type: Report from Study
  Country: None (occurrence: RO)
  Receive Date: 20170109
  Receipt Date: 20170109
  Transmission Date: 20170428
  Serious: Yes (Death, Hospitalization)
  Sender: FDA-Public Use
  Company Number: RO-ABBVIE-17P-135-1830387-00

PATIENT
  Age: 79 Year
  Sex: Male

DRUGS (3)
  1. AVODART [Concomitant]
     Active Substance: DUTASTERIDE
     Indication: PROSTATIC ADENOMA
     Route: 048
     Dates: start: 2012, end: 20170101
  2. DUODOPA [Suspect]
     Active Substance: CARBIDOPA\LEVODOPA
     Indication: PARKINSON^S DISEASE
     Dosage: 16 HOURS 11ML/9ML/3.5ML
     Route: 050
     Dates: start: 20120919, end: 20170101
  3. INKONTAN [Concomitant]
     Indication: PROSTATIC ADENOMA
     Route: 048
     Dates: start: 2012, end: 20170101

REACTIONS (2)
  - Respiratory failure [Fatal]
  - Cardio-respiratory arrest [Fatal]

NARRATIVE: CASE EVENT DATE: 20160101
